FAERS Safety Report 14245263 (Version 1)
Quarter: 2017Q4

REPORT INFORMATION
  Report Type: Spontaneous
  Country: US (occurrence: US)
  Receive Date: 20171202
  Receipt Date: 20171202
  Transmission Date: 20180321
  Serious: No
  Sender: FDA-Public Use
  Company Number: US-ENDO PHARMACEUTICALS INC-2017-000283

PATIENT
  Age: 67 Year
  Sex: Male
  Weight: 72.56 kg

DRUGS (6)
  1. XIAFLEX [Suspect]
     Active Substance: COLLAGENASE CLOSTRIDIUM HISTOLYTICUM
     Indication: PEYRONIE^S DISEASE
     Dosage: UNK, FIRST INJECTION, SECOND CYCLE
     Route: 026
     Dates: start: 20170110, end: 20170110
  2. MAGNESIUM OXIDE TABLETS [Concomitant]
     Indication: PRODUCT USED FOR UNKNOWN INDICATION
  3. XIAFLEX [Suspect]
     Active Substance: COLLAGENASE CLOSTRIDIUM HISTOLYTICUM
     Dosage: UNK, FIRST INJECTION, FIRST CYCLE
     Route: 026
     Dates: start: 20160815
  4. VITAMIN D3 [Concomitant]
     Active Substance: CHOLECALCIFEROL
     Indication: PRODUCT USED FOR UNKNOWN INDICATION
  5. ALEVE [Concomitant]
     Active Substance: NAPROXEN SODIUM
     Indication: PRODUCT USED FOR UNKNOWN INDICATION
  6. XIAFLEX [Suspect]
     Active Substance: COLLAGENASE CLOSTRIDIUM HISTOLYTICUM
     Dosage: UNK, SECOND INJECTION, FIRST CYCLE
     Route: 026
     Dates: start: 20160817

REACTIONS (5)
  - Penile pain [Recovering/Resolving]
  - Penile blister [Recovering/Resolving]
  - Dysuria [Recovering/Resolving]
  - Penile haematoma [Recovering/Resolving]
  - Penile swelling [Recovering/Resolving]

NARRATIVE: CASE EVENT DATE: 20170110
